FAERS Safety Report 8219321-X (Version None)
Quarter: 2012Q1

REPORT INFORMATION
  Report Type: 
  Country: None (occurrence: None)
  Receive Date: 20120319
  Receipt Date: 20120314
  Transmission Date: 20120608
  Serious: Yes (Hospitalization, Other)
  Sender: FDA-Public Use
  Company Number: US-TEVA-328239USA

PATIENT
  Age: 55 Year
  Sex: Female

DRUGS (2)
  1. MORPHINE [Suspect]
  2. COPAXONE [Suspect]
     Indication: MULTIPLE SCLEROSIS
     Dosage: 20 MILLIGRAM;
     Route: 058

REACTIONS (4)
  - HIP FRACTURE [None]
  - FALL [None]
  - HALLUCINATION [None]
  - NIGHTMARE [None]
